FAERS Safety Report 4697428-1 (Version None)
Quarter: 2005Q2

REPORT INFORMATION
  Report Type: 
  Country: None (occurrence: None)
  Receive Date: 20050621
  Receipt Date: 20050602
  Transmission Date: 20051028
  Serious: Yes (Hospitalization, Other)
  Sender: FDA-Public Use
  Company Number: US_0506118343

PATIENT
  Age: 75 Year
  Sex: Female

DRUGS (10)
  1. FORTEO [Suspect]
     Dates: start: 20041228, end: 20050101
  2. ENALAPRIL MALEATE [Concomitant]
  3. COREG [Concomitant]
  4. LASIX (FUROSEMIDE          /00032601/) [Concomitant]
  5. NEXIUM [Concomitant]
  6. NEURONTIN [Concomitant]
  7. IRON SULFATETHIAMIN COMPOUND TAB [Concomitant]
  8. ACETYLSALICYLIC ACID SRT [Concomitant]
  9. ULTRAM [Concomitant]
  10. ACETAMINOPHEN [Concomitant]

REACTIONS (13)
  - AUTOIMMUNE HEPATITIS [None]
  - BACK PAIN [None]
  - CARDIAC FAILURE CONGESTIVE [None]
  - CONDITION AGGRAVATED [None]
  - CONTUSION [None]
  - DIZZINESS POSTURAL [None]
  - DRUG INEFFECTIVE [None]
  - DYSARTHRIA [None]
  - DYSPEPSIA [None]
  - FALL [None]
  - FEMORAL NECK FRACTURE [None]
  - MYASTHENIA GRAVIS [None]
  - SERUM FERRITIN INCREASED [None]
